FAERS Safety Report 6679054-8 (Version None)
Quarter: 2010Q2

REPORT INFORMATION
  Report Type: 
  Country: None (occurrence: None)
  Receive Date: 20100413
  Receipt Date: 20100408
  Transmission Date: 20101027
  Serious: Yes (Life-Threatening, Other)
  Sender: FDA-Public Use
  Company Number: PHHY2010US22158

PATIENT
  Sex: Female

DRUGS (3)
  1. DIOVAN [Suspect]
     Dosage: 160 MG, UNK
  2. DIOVAN HCT [Suspect]
     Dosage: 160/25 MG
  3. NORVASC [Suspect]
     Dosage: UNK

REACTIONS (3)
  - COUGH [None]
  - FEELING ABNORMAL [None]
  - OEDEMA PERIPHERAL [None]
